FAERS Safety Report 5287574-6 (Version None)
Quarter: 2007Q1

REPORT INFORMATION
  Report Type: 
  Country: None (occurrence: None)
  Receive Date: 20070126
  Receipt Date: 20060516
  Transmission Date: 20070707
  Serious: No
  Sender: FDA-Public Use
  Company Number: 2006CT001103

PATIENT
  Age: 40 Year
  Sex: Female
  Weight: 117.9 kg

DRUGS (11)
  1. VENTAVIS [Suspect]
     Indication: PULMONARY HYPERTENSION
     Dosage: SEE IMAGE
     Route: 055
     Dates: start: 20060412, end: 20060412
  2. VENTAVIS [Suspect]
     Indication: PULMONARY HYPERTENSION
     Dosage: SEE IMAGE
     Route: 055
     Dates: start: 20060412, end: 20060418
  3. VENTAVIS [Suspect]
     Indication: PULMONARY HYPERTENSION
     Dosage: SEE IMAGE
     Route: 055
     Dates: start: 20060501, end: 20060501
  4. SENNA [Concomitant]
  5. FLONASE [Concomitant]
  6. GABAPENTIN [Concomitant]
  7. WARFARIN [Concomitant]
  8. PREVACID [Concomitant]
  9. NAPROXEN [Concomitant]
  10. SYNTHROID [Concomitant]
  11. ACETAMINOPHEN [Concomitant]

REACTIONS (7)
  - COUGH [None]
  - NAUSEA [None]
  - RETCHING [None]
  - RIGHT VENTRICULAR FAILURE [None]
  - SALIVARY HYPERSECRETION [None]
  - VIRAL UPPER RESPIRATORY TRACT INFECTION [None]
  - VOMITING [None]
